FAERS Safety Report 5460734-7 (Version None)
Quarter: 2007Q3

REPORT INFORMATION
  Report Type: 
  Country: None (occurrence: None)
  Receive Date: 20070919
  Receipt Date: 20070917
  Transmission Date: 20080115
  Serious: Yes (Death)
  Sender: FDA-Public Use
  Company Number: GB-MERCK-0708GBR00093

PATIENT
  Age: 85 Year
  Sex: Female

DRUGS (7)
  1. TIMOPTIC [Suspect]
     Indication: GLAUCOMA
     Route: 047
     Dates: end: 20040101
  2. BETAXOLOL HYDROCHLORIDE [Suspect]
     Indication: GLAUCOMA
     Route: 047
  3. FUROSEMIDE [Concomitant]
     Indication: CARDIAC FAILURE CONGESTIVE
     Route: 065
     Dates: start: 20030101
  4. RISEDRONATE SODIUM [Concomitant]
     Indication: OSTEOPOROSIS
     Route: 065
     Dates: start: 20040101
  5. CALCIUM CARBONATE [Concomitant]
     Indication: OSTEOPOROSIS
     Route: 065
     Dates: start: 20030101
  6. CANDESARTAN [Concomitant]
     Indication: CARDIAC FAILURE CONGESTIVE
     Route: 065
     Dates: start: 20030101
  7. CIPROFIBRATE [Concomitant]
     Indication: HYPERCHOLESTEROLAEMIA
     Route: 065
     Dates: start: 20030101

REACTIONS (4)
  - DEATH [None]
  - PRESYNCOPE [None]
  - THERAPEUTIC RESPONSE UNEXPECTED [None]
  - WHEEZING [None]
